FAERS Safety Report 9245096 (Version 1)
Quarter: 2013Q1

REPORT INFORMATION
  Report Type: Spontaneous
  Country: US (occurrence: None)
  Receive Date: 20121130
  Receipt Date: 20121130
  Transmission Date: 20140127
  Serious: Yes (Hospitalization)
  Sender: FDA-Public Use
  Company Number: 354504

PATIENT
  Age: 53 Year
  Sex: Female
  Weight: 89.8 kg

DRUGS (1)
  1. NOVOLOG FLEXPEN [Suspect]
     Indication: TYPE 2 DIABETES MELLITUS
     Dates: start: 20120213

REACTIONS (3)
  - Device malfunction [None]
  - Diabetic coma [None]
  - Blood glucose increased [None]
